FAERS Safety Report 5047140-4 (Version None)
Quarter: 2006Q3

REPORT INFORMATION
  Report Type: 
  Country: None (occurrence: None)
  Receive Date: 20060703
  Receipt Date: 20060619
  Transmission Date: 20061208
  Serious: Yes (Death, Life-Threatening, Hospitalization)
  Sender: FDA-Public Use
  Company Number: 2006029505

PATIENT
  Age: 68 Year
  Sex: Male
  Weight: 69.5 kg

DRUGS (10)
  1. SUTENT [Suspect]
     Indication: HEPATIC NEOPLASM MALIGNANT
     Dosage: 50 MG (50 MG, 4 WEEKS), ORAL
     Route: 048
     Dates: start: 20060217, end: 20060224
  2. LACTULOSE [Concomitant]
  3. GINKOR FORT (GINKGO BILOBA, HEPTAMINOL HYDROCHLORIDE, TROXERUTIN) [Concomitant]
  4. ALDACTONE [Concomitant]
  5. METFORMIN [Concomitant]
  6. ZOCOR [Concomitant]
  7. XATRAL (ALFUZOSIN) [Concomitant]
  8. TRASICOR (OXPRENOLOL HYDROCHLORIDE) [Concomitant]
  9. POTASSIUM CHLORIDE [Concomitant]
  10. PERMIXON (SERENOA REPENS) [Concomitant]

REACTIONS (6)
  - APHASIA [None]
  - BALANCE DISORDER [None]
  - HEPATIC ENCEPHALOPATHY [None]
  - NERVOUS SYSTEM DISORDER [None]
  - PROTHROMBIN TIME RATIO INCREASED [None]
  - SOMNOLENCE [None]
